FAERS Safety Report 17833868 (Version 6)
Quarter: 2020Q3

REPORT INFORMATION
  Report Type: Spontaneous
  Country: BR (occurrence: BR)
  Receive Date: 20200528
  Receipt Date: 20200730
  Transmission Date: 20201103
  Serious: Yes (Hospitalization, Other)
  Sender: FDA-Public Use
  Company Number: BR-SA-2020SA136360

PATIENT

DRUGS (3)
  1. GLIFAGE [Concomitant]
     Active Substance: METFORMIN HYDROCHLORIDE
     Indication: TYPE 2 DIABETES MELLITUS
     Dosage: 850 MG, BID
     Route: 048
  2. LANTUS SOLOSTAR [Suspect]
     Active Substance: INSULIN GLARGINE
     Indication: TYPE 2 DIABETES MELLITUS
     Dosage: 15 IU, QD
     Route: 058
     Dates: start: 2013, end: 2017
  3. LANTUS SOLOSTAR [Suspect]
     Active Substance: INSULIN GLARGINE
     Dosage: 20 IU IN THE MORNING AND 20 IU AT NIGHT
     Route: 058
     Dates: start: 20200601, end: 202006

REACTIONS (10)
  - Diabetes mellitus inadequate control [Unknown]
  - Blood glucose increased [Recovered/Resolved]
  - Off label use [Unknown]
  - Malaise [Recovered/Resolved]
  - Drug ineffective [Recovered/Resolved]
  - Weight decreased [Recovered/Resolved]
  - Drug ineffective for unapproved indication [Unknown]
  - Drug dependence [Unknown]
  - Blood glucose increased [Unknown]
  - Extremity necrosis [Recovered/Resolved]

NARRATIVE: CASE EVENT DATE: 2017
